FAERS Safety Report 5125684-4 (Version None)
Quarter: 2006Q4

REPORT INFORMATION
  Report Type: 
  Country: None (occurrence: None)
  Receive Date: 20061012
  Receipt Date: 20060913
  Transmission Date: 20070319
  Serious: Yes (Hospitalization, Other)
  Sender: FDA-Public Use
  Company Number: PHMT2006CA01826

PATIENT
  Age: 44 Year
  Sex: Male

DRUGS (5)
  1. CLOZARIL [Suspect]
     Indication: DEPRESSION
     Dosage: 50 MG PER DAY
     Route: 048
     Dates: start: 20060830, end: 20060908
  2. FLUOXETINE [Concomitant]
  3. ZYPREXA [Concomitant]
  4. HALDOL [Concomitant]
  5. SEROQUEL [Concomitant]

REACTIONS (3)
  - CONVULSION [None]
  - FALL [None]
  - LACERATION [None]
